FAERS Safety Report 16381900 (Version 2)
Quarter: 2019Q2

REPORT INFORMATION
  Report Type: Spontaneous
  Country: PL (occurrence: PL)
  Receive Date: 20190603
  Receipt Date: 20190613
  Transmission Date: 20190711
  Serious: Yes (Other)
  Sender: FDA-Public Use
  Company Number: PL-BIOGEN-2019BI00745455

PATIENT
  Age: 2 Year
  Sex: Female

DRUGS (1)
  1. SPINRAZA [Suspect]
     Active Substance: NUSINERSEN
     Indication: SPINAL MUSCULAR ATROPHY
     Dosage: 12MG/5ML EVERY 4 MONTHS
     Route: 037
     Dates: start: 20171106, end: 20190108

REACTIONS (2)
  - Optic neuritis [Unknown]
  - Optic atrophy [Unknown]

NARRATIVE: CASE EVENT DATE: 20190524
